FAERS Safety Report 5101495-0 (Version None)
Quarter: 2006Q3

REPORT INFORMATION
  Report Type: 
  Country: None (occurrence: None)
  Receive Date: 20060911
  Receipt Date: 20060829
  Transmission Date: 20061208
  Serious: Yes (Other)
  Sender: FDA-Public Use
  Company Number: 2006GB01543

PATIENT
  Age: 74 Year
  Sex: Female

DRUGS (9)
  1. BUPIVACAINE [Suspect]
     Indication: ANAESTHESIA
     Route: 047
  2. LIDOCAINE [Suspect]
     Indication: ANAESTHESIA
     Route: 047
  3. CEFUROXIME [Suspect]
     Indication: POSTOPERATIVE CARE
     Route: 058
  4. CHLORAMPHENICOL [Suspect]
     Route: 047
  5. HYALURONIDASE [Suspect]
     Indication: ANAESTHESIA
     Route: 047
  6. POVIDONE IODINE [Suspect]
     Indication: ENDOPHTHALMITIS
     Route: 061
  7. POVIDONE IODINE [Suspect]
     Indication: PROPHYLAXIS
     Route: 061
  8. PREDNISOLONE [Suspect]
     Indication: POSTOPERATIVE CARE
     Route: 047
  9. PROXYMETACAINE [Concomitant]

REACTIONS (6)
  - CATARACT OPERATION COMPLICATION [None]
  - DRUG HYPERSENSITIVITY [None]
  - EYELID OEDEMA [None]
  - PAPILLOEDEMA [None]
  - PAROPHTHALMIA [None]
  - VISUAL ACUITY REDUCED [None]
